FAERS Safety Report 15496518 (Version 1)
Quarter: 2018Q4

REPORT INFORMATION
  Report Type: Spontaneous
  Country: US (occurrence: US)
  Receive Date: 20181013
  Receipt Date: 20181013
  Transmission Date: 20190205
  Serious: No
  Sender: FDA-Public Use
  Company Number: US-JNJFOC-20180937667

PATIENT
  Sex: Male

DRUGS (1)
  1. SIMPONI ARIA [Suspect]
     Active Substance: GOLIMUMAB
     Indication: ANKYLOSING SPONDYLITIS
     Dosage: AT A  DOSE OF 2 MG/KG (152.4 MG) AT WEEK 4 THEN EVERY 8 WEEKS THEREAFTER
     Route: 042
     Dates: start: 20180130

REACTIONS (1)
  - Skin fissures [Unknown]
